FAERS Safety Report 5320425-X (Version None)
Quarter: 2007Q2

REPORT INFORMATION
  Report Type: 
  Country: None (occurrence: None)
  Receive Date: 20070509
  Receipt Date: 20070508
  Transmission Date: 20071010
  Serious: Yes (Other)
  Sender: FDA-Public Use
  Company Number: US-BRISTOL-MYERS SQUIBB COMPANY-13709266

PATIENT
  Age: 35 Year
  Sex: Male

DRUGS (1)
  1. ENTECAVIR TABS [Suspect]
     Indication: HEPATITIS B VIRUS
     Route: 048
     Dates: start: 20060110

REACTIONS (3)
  - ALANINE AMINOTRANSFERASE INCREASED [None]
  - ASPARTATE AMINOTRANSFERASE INCREASED [None]
  - BLOOD HIV RNA DECREASED [None]
